FAERS Safety Report 11796895 (Version 1)
Quarter: 2015Q4

REPORT INFORMATION
  Report Type: Spontaneous
  Country: TW (occurrence: TW)
  Receive Date: 20151203
  Receipt Date: 20151203
  Transmission Date: 20160305
  Serious: Yes (Hospitalization, Other)
  Sender: FDA-Public Use
  Company Number: TW-ACTAVIS-2015-26167

PATIENT
  Age: 60 Year
  Sex: Female

DRUGS (8)
  1. QUETIAPINE (UNKNOWN) [Suspect]
     Active Substance: QUETIAPINE
     Indication: SCHIZOPHRENIA
     Dosage: 925 MG TAPERED TO 200MG, DAILY
     Route: 065
     Dates: start: 201411
  2. QUETIAPINE (UNKNOWN) [Interacting]
     Active Substance: QUETIAPINE
  3. AUGMENTIN [Concomitant]
     Active Substance: AMOXICILLIN\CLAVULANATE POTASSIUM
     Indication: UPPER RESPIRATORY TRACT INFECTION
     Dosage: 3600 MG, DAILY
     Route: 065
  4. QUETIAPINE (UNKNOWN) [Interacting]
     Active Substance: QUETIAPINE
     Dosage: 200 MG, DAILY
     Route: 065
     Dates: start: 201501
  5. CARBAMAZEPINE (UNKNOWN) [Interacting]
     Active Substance: CARBAMAZEPINE
     Dosage: 400 MG, DAILY
     Route: 065
     Dates: start: 201501
  6. QUETIAPINE (UNKNOWN) [Interacting]
     Active Substance: QUETIAPINE
     Dosage: 150 MG, DAILY
     Route: 065
  7. CEFRADINE [Concomitant]
     Active Substance: CEPHRADINE
     Indication: URINARY TRACT INFECTION
     Dosage: 2000 MG, DAILY
     Route: 048
  8. CARBAMAZEPINE (UNKNOWN) [Interacting]
     Active Substance: CARBAMAZEPINE
     Indication: SCHIZOPHRENIA
     Dosage: 600 MG, DAILY
     Route: 065
     Dates: start: 201411

REACTIONS (2)
  - Neuroleptic malignant syndrome [Recovered/Resolved]
  - Drug interaction [Recovered/Resolved]
